FAERS Safety Report 6441691-3 (Version None)
Quarter: 2009Q4

REPORT INFORMATION
  Report Type: 
  Country: None (occurrence: None)
  Receive Date: 20091116
  Receipt Date: 20091103
  Transmission Date: 20100525
  Serious: Yes (Hospitalization, Other)
  Sender: FDA-Public Use
  Company Number: US-MERCK-0909USA01531

PATIENT
  Sex: Female
  Weight: 50 kg

DRUGS (2)
  1. FOSAMAX [Suspect]
     Indication: OSTEOPOROSIS
     Route: 048
     Dates: start: 20030101, end: 20040101
  2. PAMIDRONATE DISODIUM [Suspect]
     Route: 065

REACTIONS (22)
  - ABSCESS [None]
  - ANXIETY [None]
  - ARTHRITIS [None]
  - BINGE EATING [None]
  - BRUXISM [None]
  - DENTAL CARIES [None]
  - DEPRESSION [None]
  - DYSPHAGIA [None]
  - FRACTURE [None]
  - GASTROINTESTINAL DISORDER [None]
  - GOUT [None]
  - GRIEF REACTION [None]
  - MUSCLE SPASMS [None]
  - OESOPHAGEAL PAIN [None]
  - ORAL DISORDER [None]
  - OSTEONECROSIS [None]
  - RESTLESS LEGS SYNDROME [None]
  - ROTATOR CUFF SYNDROME [None]
  - SPINAL FRACTURE [None]
  - SUICIDAL IDEATION [None]
  - THERAPEUTIC RESPONSE DECREASED [None]
  - TOOTH ABSCESS [None]
